FAERS Safety Report 16107319 (Version 1)
Quarter: 2019Q1

REPORT INFORMATION
  Report Type: Spontaneous
  Country: US (occurrence: US)
  Receive Date: 20190322
  Receipt Date: 20190322
  Transmission Date: 20190418
  Serious: No
  Sender: FDA-Public Use
  Company Number: US-SA-2019SA078559

PATIENT
  Age: 58 Year
  Sex: Female

DRUGS (1)
  1. PRALUENT [Suspect]
     Active Substance: ALIROCUMAB
     Dosage: 1 ML, QOW
     Route: 058
     Dates: start: 2019, end: 2019

REACTIONS (6)
  - Rash [Unknown]
  - Joint swelling [Unknown]
  - Feeling hot [Unknown]
  - Pyrexia [Unknown]
  - Cough [Unknown]
  - Lip discolouration [Unknown]

NARRATIVE: CASE EVENT DATE: 2019
